FAERS Safety Report 13804174 (Version 1)
Quarter: 2017Q3

REPORT INFORMATION
  Report Type: Spontaneous
  Country: US (occurrence: US)
  Receive Date: 20170728
  Receipt Date: 20170728
  Transmission Date: 20171127
  Serious: Yes (Hospitalization)
  Sender: FDA-Public Use
  Company Number: None

PATIENT
  Age: 59 Year
  Sex: Female
  Weight: 77.18 kg

DRUGS (2)
  1. PROHANCE [Suspect]
     Active Substance: GADOTERIDOL
     Indication: CONFUSIONAL STATE
     Dosage: 1   R+ AC
     Dates: start: 20170710
  2. PROHANCE [Suspect]
     Active Substance: GADOTERIDOL
     Indication: DELIRIUM
     Dosage: 1   R+ AC
     Dates: start: 20170710

REACTIONS (5)
  - Headache [None]
  - Hypersensitivity [None]
  - Nausea [None]
  - Pharyngeal oedema [None]
  - Dizziness [None]

NARRATIVE: CASE EVENT DATE: 20170710
